FAERS Safety Report 5570293-6 (Version None)
Quarter: 2007Q4

REPORT INFORMATION
  Report Type: 
  Country: None (occurrence: None)
  Receive Date: 20071219
  Receipt Date: 20071219
  Transmission Date: 20080405
  Serious: No
  Sender: FDA-Public Use
  Company Number: None

PATIENT
  Age: 58 Year
  Sex: Female
  Weight: 63.5036 kg

DRUGS (11)
  1. ELOXATIN [Suspect]
     Indication: RECTAL CANCER
     Dosage: 136 MG QOW IVPB
     Route: 042
     Dates: start: 20070924
  2. ELOXATIN [Suspect]
     Indication: RECTAL CANCER
     Dosage: 136 MG QOW IVPB
     Route: 042
     Dates: start: 20071008
  3. ELOXATIN [Suspect]
     Indication: RECTAL CANCER
     Dosage: 136 MG QOW IVPB
     Route: 042
     Dates: start: 20071105
  4. AVASTIN [Concomitant]
  5. ERBITUX [Concomitant]
  6. OXALIPLATIN [Concomitant]
  7. MAGNESIUM [Concomitant]
  8. LEUCOVORIN [Concomitant]
  9. FLUOROURACIL [Concomitant]
  10. DECADRON [Concomitant]
  11. BENADRYL [Concomitant]

REACTIONS (1)
  - CARDIAC ARREST [None]
